FAERS Safety Report 8574485-3 (Version None)
Quarter: 2012Q3

REPORT INFORMATION
  Report Type: 
  Country: None (occurrence: None)
  Receive Date: 20120806
  Receipt Date: 20110920
  Transmission Date: 20120928
  Serious: No
  Sender: FDA-Public Use
  Company Number: US-ABBOTT-11P-163-0857101-00

PATIENT
  Age: 36 Year
  Sex: Male
  Weight: 77.18 kg

DRUGS (2)
  1. SYNTHROID [Concomitant]
     Indication: PRODUCT USED FOR UNKNOWN INDICATION
  2. DEPAKOTE ER [Suspect]
     Indication: BIPOLAR DISORDER
     Dates: start: 20100601, end: 20100701

REACTIONS (2)
  - HAIR GROWTH ABNORMAL [None]
  - ALOPECIA [None]
